FAERS Safety Report 17935368 (Version 1)
Quarter: 2020Q2

REPORT INFORMATION
  Report Type: Spontaneous
  Country: US (occurrence: US)
  Receive Date: 20200623
  Receipt Date: 20200623
  Transmission Date: 20200714
  Serious: No
  Sender: FDA-Public Use
  Company Number: None

PATIENT
  Age: 78 Year
  Sex: Male
  Weight: 71 kg

DRUGS (1)
  1. # CIPROFLOXACIN CIPROFLOXACIN HCL 500MG TAB) [Suspect]
     Active Substance: CIPROFLOXACIN HYDROCHLORIDE
     Indication: PYELONEPHRITIS
     Route: 048
     Dates: start: 20170901, end: 20170905

REACTIONS (2)
  - Renal impairment [None]
  - Tubulointerstitial nephritis [None]

NARRATIVE: CASE EVENT DATE: 20170908
